FAERS Safety Report 10030581 (Version 1)
Quarter: 2014Q1

REPORT INFORMATION
  Report Type: Spontaneous
  Country: US (occurrence: US)
  Receive Date: 20140323
  Receipt Date: 20140323
  Transmission Date: 20141002
  Serious: No
  Sender: FDA-Public Use
  Company Number: US-ALLERGAN-1316959US

PATIENT
  Age: 67 Year
  Sex: 0

DRUGS (6)
  1. LATISSE 0.03% [Suspect]
     Indication: GROWTH OF EYELASHES
     Dosage: 2 GTT, QHS
     Route: 003
     Dates: start: 201307
  2. LATISSE 0.03% [Suspect]
     Dosage: UNK
     Dates: start: 201209
  3. REFRESH LIQUIGEL OPHTHALMIC [Concomitant]
     Indication: DRY EYE
     Dosage: UNK, QHS
     Route: 047
     Dates: start: 201310
  4. REFRESH TEARS [Concomitant]
     Indication: DRY EYE
     Dosage: UNK
     Dates: start: 201310
  5. LIPITOR [Concomitant]
     Indication: BLOOD CHOLESTEROL INCREASED
     Dosage: 20 MG, QHS
     Route: 048
  6. LISINOPRIL HCTZ [Concomitant]
     Indication: HYPERTENSION
     Dosage: 20/25MG, QID
     Route: 048

REACTIONS (3)
  - Therapeutic response decreased [Unknown]
  - Madarosis [Unknown]
  - Dry eye [Unknown]
